FAERS Safety Report 7397922-9 (Version None)
Quarter: 2011Q2

REPORT INFORMATION
  Report Type: 
  Country: None (occurrence: None)
  Receive Date: 20110406
  Receipt Date: 20110326
  Transmission Date: 20111010
  Serious: Yes (Other)
  Sender: FDA-Public Use
  Company Number: US-CEPHALON-2011001428

PATIENT
  Sex: Female
  Weight: 93 kg

DRUGS (7)
  1. NUVIGIL [Suspect]
     Indication: NARCOLEPSY
     Route: 048
     Dates: start: 20110101
  2. SPIRONOLACTONE [Concomitant]
     Dates: start: 20110301, end: 20110301
  3. MINOCYCLINE [Concomitant]
     Dates: start: 20110101, end: 20110101
  4. LASIX [Concomitant]
     Dates: start: 20110301, end: 20110326
  5. FINACEA [Concomitant]
     Dates: start: 20110101, end: 20110101
  6. CEFADROXIL [Concomitant]
     Dates: start: 20110325
  7. CORTISONE CREAM [Concomitant]
     Dates: start: 20110101, end: 20110101

REACTIONS (7)
  - DRY SKIN [None]
  - SKIN BURNING SENSATION [None]
  - OEDEMA PERIPHERAL [None]
  - RASH PAPULAR [None]
  - SKIN EXFOLIATION [None]
  - LOCAL SWELLING [None]
  - SECRETION DISCHARGE [None]
